FAERS Safety Report 8847889 (Version 1)
Quarter: 2012Q4

REPORT INFORMATION
  Report Type: 
  Country: MY (occurrence: MY)
  Receive Date: 20121018
  Receipt Date: 20121018
  Transmission Date: 20130627
  Serious: Yes (Other)
  Sender: FDA-Public Use
  Company Number: MY-BAXTER-2012BAX019673

PATIENT
  Age: 56 Year
  Sex: Female

DRUGS (3)
  1. ENDOXAN INJ 200MG (15ML VIAL) [Suspect]
     Indication: BREAST CANCER
     Route: 042
  2. FLUOROURACIL [Suspect]
     Indication: BREAST CANCER
     Route: 042
  3. ADRIAMYCIN [Suspect]
     Indication: BREAST CANCER
     Route: 042

REACTIONS (1)
  - Cardiomyopathy [Not Recovered/Not Resolved]
